FAERS Safety Report 8676809 (Version 2)
Quarter: 2013Q4

REPORT INFORMATION
  Report Type: Spontaneous
  Country: US (occurrence: US)
  Receive Date: 20120723
  Receipt Date: 20131101
  Transmission Date: 20140711
  Serious: No
  Sender: FDA-Public Use
  Company Number: US-009507513-1207USA005277

PATIENT
  Age: 24 Year
  Sex: Female
  Weight: 47.62 kg

DRUGS (1)
  1. NUVARING [Suspect]
     Dosage: UNK
     Route: 067
     Dates: start: 2007

REACTIONS (3)
  - Medical device discomfort [Not Recovered/Not Resolved]
  - Device expulsion [Not Recovered/Not Resolved]
  - Product quality issue [Not Recovered/Not Resolved]
